FAERS Safety Report 7369537-X (Version None)
Quarter: 2011Q1

REPORT INFORMATION
  Report Type: 
  Country: None (occurrence: None)
  Receive Date: 20110314
  Receipt Date: 20110303
  Transmission Date: 20110831
  Serious: Yes (Hospitalization)
  Sender: FDA-Public Use
  Company Number: UTC-005512

PATIENT
  Age: 66 Year
  Sex: Female

DRUGS (2)
  1. REVATIO (SILDENAFIL CIRTRATE) [Concomitant]
  2. TYVASO [Suspect]
     Dosage: 18 TO 54 MICROGRAMS(4 IN 1 D), INHALATION
     Route: 055

REACTIONS (3)
  - HYPONATRAEMIA [None]
  - FALL [None]
  - CONFUSIONAL STATE [None]
